FAERS Safety Report 9034645 (Version 1)
Quarter: 2013Q1

REPORT INFORMATION
  Report Type: Spontaneous
  Country: US (occurrence: None)
  Receive Date: 20130111
  Receipt Date: 20130111
  Transmission Date: 20140127
  Serious: Yes (Other)
  Sender: FDA-Public Use
  Company Number: 2012CT000009

PATIENT
  Age: 60 Year
  Sex: Female

DRUGS (6)
  1. KORLYM [Suspect]
     Indication: PITUITARY-DEPENDENT CUSHING^S SYNDROME
     Route: 048
     Dates: start: 20120518, end: 20121124
  2. METFORMIN [Concomitant]
  3. IMITREX /01044801/ [Concomitant]
  4. VITAMIN D /00107901/ [Concomitant]
  5. CALCIUM+VIT D /05099901/ [Concomitant]
  6. SPIRONOLACTONE [Concomitant]

REACTIONS (5)
  - Cerebrovascular accident [None]
  - Hypertension [None]
  - Oedema peripheral [None]
  - Oedema peripheral [None]
  - Swelling [None]
